FAERS Safety Report 4961564-2 (Version None)
Quarter: 2006Q1

REPORT INFORMATION
  Report Type: 
  Country: None (occurrence: None)
  Receive Date: 20060329
  Receipt Date: 20060316
  Transmission Date: 20060701
  Serious: Yes (Hospitalization, Disabling, Other)
  Sender: FDA-Public Use
  Company Number: 2005163994

PATIENT
  Age: 66 Year
  Sex: Female
  Weight: 56 kg

DRUGS (3)
  1. SUTENT [Suspect]
     Indication: RENAL CELL CARCINOMA STAGE UNSPECIFIED
     Dosage: 50 MG (50 MG, 1 IN 1 D), ORAL
     Route: 048
     Dates: end: 20051201
  2. IRENAT (SODIUM PERCHLORATE) [Concomitant]
  3. FAVISTAN (THIAMAZOLE) [Concomitant]

REACTIONS (5)
  - BACK INJURY [None]
  - FALL [None]
  - PARAPARESIS [None]
  - PERIPHERAL SENSORY NEUROPATHY [None]
  - POLYNEUROPATHY TOXIC [None]
